FAERS Safety Report 7750934-5 (Version None)
Quarter: 2011Q3

REPORT INFORMATION
  Report Type: 
  Country: None (occurrence: None)
  Receive Date: 20110912
  Receipt Date: 20110310
  Transmission Date: 20111222
  Serious: Yes (Other)
  Sender: FDA-Public Use
  Company Number: GER/USA/11/0017745

PATIENT
  Age: 80 Year
  Sex: Female

DRUGS (7)
  1. DIGOXIN [Concomitant]
  2. LISINOPRIL [Concomitant]
  3. ACETAMINOPHEN [Concomitant]
  4. NAPROXEN [Suspect]
     Indication: PRODUCT USED FOR UNKNOWN INDICATION
     Dosage: 550 MG, 2 IN 1 D
  5. METOPROLOL [Concomitant]
  6. METHOTREXATE [Concomitant]
  7. FUROSEMIDE [Concomitant]

REACTIONS (2)
  - WEIGHT INCREASED [None]
  - HAEMORRHAGE [None]
